FAERS Safety Report 9269999 (Version 1)
Quarter: 2013Q2

REPORT INFORMATION
  Report Type: Spontaneous
  Country: US (occurrence: US)
  Receive Date: 20130502
  Receipt Date: 20130502
  Transmission Date: 20140414
  Serious: Yes (Hospitalization)
  Sender: FDA-Public Use
  Company Number: US-RB-053058-13

PATIENT
  Sex: 0

DRUGS (1)
  1. BUPRENORPHINE/NALOXONE GENERIC [Suspect]
     Indication: PRODUCT USED FOR UNKNOWN INDICATION
     Dosage: DOSING DETAILS UNKNOWN
     Route: 060

REACTIONS (1)
  - Hospitalisation [Not Recovered/Not Resolved]
